FAERS Safety Report 11123718 (Version 1)
Quarter: 2015Q2

REPORT INFORMATION
  Report Type: Spontaneous
  Country: US (occurrence: US)
  Receive Date: 20150519
  Receipt Date: 20150519
  Transmission Date: 20150821
  Serious: Yes (Hospitalization, Other)
  Sender: FDA-Public Use
  Company Number: US-ENDO PHARMACEUTICALS INC.-201502067

PATIENT
  Age: 56 Year
  Sex: Male
  Weight: 96.7 kg

DRUGS (2)
  1. TESTOPEL [Suspect]
     Active Substance: TESTOSTERONE
     Indication: BLOOD TESTOSTERONE DECREASED
     Route: 058
     Dates: start: 201304, end: 201305
  2. ANDROGEL [Suspect]
     Active Substance: TESTOSTERONE
     Indication: BLOOD TESTOSTERONE DECREASED
     Route: 065
     Dates: start: 2008, end: 2012

REACTIONS (13)
  - Oedema peripheral [Unknown]
  - Chest pain [Unknown]
  - Angina pectoris [Unknown]
  - Respiratory disorder [Unknown]
  - Priapism [Unknown]
  - Dyspnoea [Unknown]
  - Palpitations [Unknown]
  - Atrial flutter [Unknown]
  - Sleep apnoea syndrome [Unknown]
  - Dizziness [Unknown]
  - Atrial fibrillation [Unknown]
  - Blood pressure increased [Unknown]
  - Bradycardia [Unknown]

NARRATIVE: CASE EVENT DATE: 20130513
